FAERS Safety Report 22235577 (Version 1)
Quarter: 2023Q2

REPORT INFORMATION
  Report Type: Spontaneous
  Country: DE (occurrence: DE)
  Receive Date: 20230420
  Receipt Date: 20230420
  Transmission Date: 20230721
  Serious: Yes (Other)
  Sender: FDA-Public Use
  Company Number: DE-DENTSPLY-2023SCDP000122

PATIENT
  Sex: Female

DRUGS (1)
  1. LIDOCAINE\PRILOCAINE [Suspect]
     Active Substance: LIDOCAINE\PRILOCAINE
     Indication: Anaesthesia
     Dosage: UNK DOSE OF EMLA CREAM
     Dates: start: 20230328

REACTIONS (4)
  - Apnoea [None]
  - Dyspnoea [None]
  - Feeling cold [None]
  - Hypersensitivity [None]
